FAERS Safety Report 7423294-7 (Version None)
Quarter: 2011Q2

REPORT INFORMATION
  Report Type: 
  Country: None (occurrence: None)
  Receive Date: 20110419
  Receipt Date: 20110405
  Transmission Date: 20111010
  Serious: Yes (Other)
  Sender: FDA-Public Use
  Company Number: DE-ROCHE-764492

PATIENT
  Sex: Female
  Weight: 65 kg

DRUGS (7)
  1. XELODA [Suspect]
     Dosage: FREQUENCY: DAILY (D1 - D14)
     Route: 048
     Dates: start: 20110126
  2. DICLOFENAC [Suspect]
     Indication: ABDOMINAL PAIN
     Dosage: FREQUENCY: (2 X 50 MG), DAILY
     Route: 048
     Dates: end: 20110315
  3. PANTOPRAZOLE [Concomitant]
     Indication: GASTRIC DISORDER
     Dosage: DOSE: 2 X 40 MG, FREQUENCY: DAILY
     Route: 048
  4. VINORELBIN [Concomitant]
  5. PARACETAMOL [Concomitant]
     Dosage: FREQUENCY: AS NEEDED
     Route: 048
  6. LYRICA [Concomitant]
     Dosage: DOSE: (3 X 50 MG) FREQUENCY:  DAILY
     Route: 048
     Dates: end: 20110201
  7. NAVELBINE [Suspect]
     Indication: BREAST CANCER
     Dosage: FREQUENCY: 3 WEEKLY (DAY 1, DAY 8 EVERY 21 DAYS)
     Route: 042
     Dates: start: 20110126

REACTIONS (5)
  - HYPERTRICHOSIS [None]
  - HAIR GROWTH ABNORMAL [None]
  - ABDOMINAL PAIN UPPER [None]
  - HEPATIC STEATOSIS [None]
  - FLATULENCE [None]
